FAERS Safety Report 6725302-5 (Version None)
Quarter: 2010Q2

REPORT INFORMATION
  Report Type: 
  Country: None (occurrence: None)
  Receive Date: 20100514
  Receipt Date: 20100512
  Transmission Date: 20101027
  Serious: Yes (Other)
  Sender: FDA-Public Use
  Company Number: US-BRISTOL-MYERS SQUIBB COMPANY-14360093

PATIENT
  Age: 85 Year
  Sex: Female
  Weight: 52 kg

DRUGS (3)
  1. COUMADIN [Suspect]
     Indication: PHLEBITIS
     Dosage: RESTARTED ON 1APR2010 WITH COUMADIN 1MG. INCREASED TO 2MG.
  2. PRILOSEC [Concomitant]
     Indication: LYME DISEASE
  3. ANTIBIOTICS [Concomitant]
     Indication: LYME DISEASE

REACTIONS (6)
  - DIZZINESS [None]
  - EAR CONGESTION [None]
  - ERYTHEMA MULTIFORME [None]
  - FATIGUE [None]
  - TINNITUS [None]
  - VERTIGO [None]
